FAERS Safety Report 4943435-0 (Version None)
Quarter: 2006Q1

REPORT INFORMATION
  Report Type: 
  Country: None (occurrence: None)
  Receive Date: 20060309
  Receipt Date: 20060227
  Transmission Date: 20060701
  Serious: Yes (Other)
  Sender: FDA-Public Use
  Company Number: 2006004180

PATIENT
  Age: 74 Year
  Sex: Female
  Weight: 105.2345 kg

DRUGS (4)
  1. ZMAX [Suspect]
     Indication: SINUSITIS
     Dosage: 2 GRAM (2 GRAM, ONCE)
     Dates: start: 20051223, end: 20051223
  2. GENERAL NUTRIENTS (GENERAL NUTRIENTS) [Suspect]
     Indication: HUNGER
  3. HYDROCHLOROTHIAZIDE [Concomitant]
  4. PSYLLIUM HYDROPHILIC MUCILLOID (PSYLLIUM HYDROPHILIC MUCILLOID) [Concomitant]

REACTIONS (6)
  - ABDOMINAL PAIN UPPER [None]
  - DIARRHOEA [None]
  - FAECES DISCOLOURED [None]
  - GASTROENTERITIS VIRAL [None]
  - MALAISE [None]
  - VOMITING [None]
